FAERS Safety Report 6259155-9 (Version None)
Quarter: 2009Q3

REPORT INFORMATION
  Report Type: 
  Country: None (occurrence: None)
  Receive Date: 20090707
  Receipt Date: 20090624
  Transmission Date: 20100115
  Serious: Yes (Hospitalization, Other)
  Sender: FDA-Public Use
  Company Number: US-AVENTIS-200915735US

PATIENT
  Sex: Female
  Weight: 104.5 kg

DRUGS (7)
  1. LANTUS [Suspect]
     Route: 058
     Dates: start: 19940101
  2. OPTICLIK (INSULIN INJECTION PEN) [Suspect]
     Dates: start: 19940101
  3. NOVOLOG [Concomitant]
     Dosage: DOSE: SLIDING SCALE
  4. AMITRIPTYLINE HYDROCHLORIDE [Concomitant]
     Dosage: DOSE: UNK
  5. DETROL [Concomitant]
     Dosage: DOSE: UNK
  6. FUROSEMIDE [Concomitant]
     Dosage: DOSE: UNK
  7. NITROGLYCERIN [Concomitant]
     Dosage: DOSE: UNK

REACTIONS (3)
  - GANGRENE [None]
  - IMPAIRED HEALING [None]
  - LEG AMPUTATION [None]
